FAERS Safety Report 20935984 (Version 1)
Quarter: 2022Q2

REPORT INFORMATION
  Report Type: Spontaneous
  Country: US (occurrence: None)
  Receive Date: 20220609
  Receipt Date: 20220609
  Transmission Date: 20220720
  Serious: No
  Sender: FDA-Public Use
  Company Number: US-ROCHE-2834963

PATIENT
  Sex: Female

DRUGS (19)
  1. ACTEMRA [Suspect]
     Active Substance: TOCILIZUMAB
     Indication: Rheumatoid arthritis
     Dosage: 0.9 ML SQ
     Route: 058
  2. ACTEMRA [Suspect]
     Active Substance: TOCILIZUMAB
  3. ACTEMRA [Suspect]
     Active Substance: TOCILIZUMAB
  4. ALBUTEROL SULFATE [Concomitant]
     Active Substance: ALBUTEROL SULFATE
  5. ATORVASTATIN CALCIUM [Concomitant]
     Active Substance: ATORVASTATIN CALCIUM
  6. BENZTROPINE MESYLATE [Concomitant]
     Active Substance: BENZTROPINE MESYLATE
  7. BUDESONIDE\FORMOTEROL FUMARATE [Concomitant]
     Active Substance: BUDESONIDE\FORMOTEROL FUMARATE
  8. BUSPIRONE HCL [Concomitant]
     Active Substance: BUSPIRONE HYDROCHLORIDE
  9. DEPAKOTE [Concomitant]
     Active Substance: DIVALPROEX SODIUM
  10. DULOXETINE HYDROCHLORIDE [Concomitant]
     Active Substance: DULOXETINE HYDROCHLORIDE
  11. HYDROXYZINE HYDROCHLORIDE [Concomitant]
     Active Substance: HYDROXYZINE HYDROCHLORIDE
  12. LATUDA [Concomitant]
     Active Substance: LURASIDONE HYDROCHLORIDE
  13. LEVOTHYROXINE SODIUM [Concomitant]
     Active Substance: LEVOTHYROXINE SODIUM
  14. METHOTREXATE SODIUM [Concomitant]
     Active Substance: METHOTREXATE SODIUM
  15. MODAFINIL [Concomitant]
     Active Substance: MODAFINIL
  16. MONTELUKAST SODIUM [Concomitant]
     Active Substance: MONTELUKAST SODIUM
  17. OXYBUTYNIN CHLORIDE [Concomitant]
     Active Substance: OXYBUTYNIN CHLORIDE
  18. TIZANIDINE HYDROCHLORIDE [Concomitant]
     Active Substance: TIZANIDINE HYDROCHLORIDE
  19. VALSARTAN [Concomitant]
     Active Substance: VALSARTAN

REACTIONS (2)
  - Intentional product misuse [Unknown]
  - No adverse event [Unknown]
